FAERS Safety Report 16465620 (Version 1)
Quarter: 2019Q2

REPORT INFORMATION
  Report Type: Spontaneous
  Country: GB (occurrence: GB)
  Receive Date: 20190621
  Receipt Date: 20190621
  Transmission Date: 20190711
  Serious: Yes (Other)
  Sender: FDA-Public Use
  Company Number: PHHY2019GB141300

PATIENT
  Age: 16 Year
  Sex: Female

DRUGS (4)
  1. SERETIDE [Suspect]
     Active Substance: FLUTICASONE PROPIONATE\SALMETEROL XINAFOATE
     Indication: ASTHMA
     Dosage: UNK
     Route: 065
  2. VENTOLIN [Suspect]
     Active Substance: ALBUTEROL SULFATE
     Indication: ASTHMA
     Dosage: FORMULATION: INHALER
     Route: 065
  3. MOMETASONE FUROATE. [Suspect]
     Active Substance: MOMETASONE FUROATE
     Indication: PRODUCT USED FOR UNKNOWN INDICATION
     Dosage: UNK
     Route: 065
  4. MONTELUKAST SODIUM. [Suspect]
     Active Substance: MONTELUKAST SODIUM
     Indication: ASTHMA
     Dosage: UNK
     Route: 048

REACTIONS (8)
  - Abnormal behaviour [Recovering/Resolving]
  - Suicidal ideation [Recovering/Resolving]
  - Thinking abnormal [Recovering/Resolving]
  - Mental disorder [Recovering/Resolving]
  - School refusal [Recovering/Resolving]
  - Anxiety [Recovering/Resolving]
  - Feeling abnormal [Recovering/Resolving]
  - Social fear [Recovering/Resolving]

NARRATIVE: CASE EVENT DATE: 2017
